FAERS Safety Report 5491944-0 (Version None)
Quarter: 2007Q4

REPORT INFORMATION
  Report Type: 
  Country: None (occurrence: None)
  Receive Date: 20071018
  Receipt Date: 20071018
  Transmission Date: 20080405
  Serious: Yes (Hospitalization)
  Sender: FDA-Public Use
  Company Number: None

PATIENT
  Age: 88 Year
  Sex: Male

DRUGS (1)
  1. WARFARIN SODIUM [Suspect]
     Indication: ATRIAL FIBRILLATION
     Dosage: 7.5/5MG   OTHER  PO
     Route: 048
     Dates: start: 20050701

REACTIONS (2)
  - DIVERTICULUM [None]
  - GASTROINTESTINAL HAEMORRHAGE [None]
